FAERS Safety Report 9820644 (Version 1)
Quarter: 2013Q4

REPORT INFORMATION
  Report Type: Spontaneous
  Country: US (occurrence: None)
  Receive Date: 20131028
  Receipt Date: 20131028
  Transmission Date: 20140711
  Serious: Yes (Other)
  Sender: FDA-Public Use
  Company Number: 2013US001785

PATIENT
  Age: 47 Year
  Sex: Female
  Weight: 40 kg

DRUGS (6)
  1. ICLUSIG [Suspect]
     Indication: CHROMOSOME ANALYSIS ABNORMAL
     Route: 048
     Dates: start: 20130417
  2. ICLUSIG [Suspect]
     Indication: ACUTE LYMPHOCYTIC LEUKAEMIA
     Route: 048
     Dates: start: 20130417
  3. OXYCODONE (OXYCODONE) [Concomitant]
  4. DIFLUCAN (FLUCONAZOLE) [Concomitant]
  5. ATIVAN (LORAZEPAM) [Concomitant]
  6. CIPRO (CIPROFLOXACIN) [Concomitant]

REACTIONS (1)
  - Renal disorder [None]
